FAERS Safety Report 6814073-X (Version None)
Quarter: 2010Q3

REPORT INFORMATION
  Report Type: 
  Country: None (occurrence: None)
  Receive Date: 20100702
  Receipt Date: 20100630
  Transmission Date: 20110219
  Serious: Yes (Death)
  Sender: FDA-Public Use
  Company Number: PHHY2010BR42600

PATIENT
  Sex: Female

DRUGS (2)
  1. EXELON [Suspect]
     Dosage: UNK
  2. EXELON [Suspect]
     Dosage: 9MG/5CM2 30 SIST
     Route: 062

REACTIONS (1)
  - DEATH [None]
